FAERS Safety Report 15095951 (Version 3)
Quarter: 2018Q4

REPORT INFORMATION
  Report Type: Spontaneous
  Country: GB (occurrence: GB)
  Receive Date: 20180702
  Receipt Date: 20181129
  Transmission Date: 20190204
  Serious: Yes (Death, Life-Threatening, Hospitalization, Other)
  Sender: FDA-Public Use
  Company Number: GB-AUROBINDO-AUR-APL-2018-032620

PATIENT
  Age: 74 Year
  Sex: Male

DRUGS (7)
  1. PIPERACILLIN AND TAZOBACTAM [Suspect]
     Active Substance: PIPERACILLIN SODIUM\TAZOBACTAM SODIUM
     Indication: PNEUMONIA
     Dosage: UNK
     Route: 065
  2. CEFTOLOZANE;TAZOBACTAM [Suspect]
     Active Substance: CEFTOLOZANE SULFATE\TAZOBACTAM SODIUM
     Indication: PNEUMONIA
     Dosage: 1.5 GRAM, FOUR TIMES/DAY(EVERY 8 HOURS)
     Route: 065
  3. CEFTAZIDIME. [Suspect]
     Active Substance: CEFTAZIDIME
     Indication: PNEUMONIA PSEUDOMONAL
     Dosage: UNK
     Route: 065
     Dates: start: 2017, end: 2017
  4. CEFTAZIDIME. [Suspect]
     Active Substance: CEFTAZIDIME
     Indication: PNEUMONIA
     Dosage: UNK
     Route: 065
  5. CEFTOLOZANE;TAZOBACTAM [Suspect]
     Active Substance: CEFTOLOZANE SULFATE\TAZOBACTAM SODIUM
     Indication: PNEUMONIA PSEUDOMONAL
     Dosage: 1.5 GRAM, 3 TIMES A DAY
     Route: 065
     Dates: start: 20170114, end: 20170128
  6. CEFTOLOZANE;TAZOBACTAM [Suspect]
     Active Substance: CEFTOLOZANE SULFATE\TAZOBACTAM SODIUM
     Dosage: 1.5 UNK
     Route: 065
     Dates: start: 2017
  7. PIPERACILLIN AND TAZOBACTAM [Suspect]
     Active Substance: PIPERACILLIN SODIUM\TAZOBACTAM SODIUM
     Indication: PNEUMONIA PSEUDOMONAL
     Dosage: UNK
     Route: 065
     Dates: start: 2017, end: 2017

REACTIONS (3)
  - Pneumonia pseudomonal [Unknown]
  - Off label use [Unknown]
  - Pathogen resistance [Fatal]

NARRATIVE: CASE EVENT DATE: 20170114
